FAERS Safety Report 8615569-0 (Version None)
Quarter: 2012Q3

REPORT INFORMATION
  Report Type: 
  Country: None (occurrence: None)
  Receive Date: 20120823
  Receipt Date: 20120816
  Transmission Date: 20120928
  Serious: Yes (Other)
  Sender: FDA-Public Use
  Company Number: PHHY2011US59610

PATIENT
  Sex: Female
  Weight: 85.261 kg

DRUGS (3)
  1. PAXIL [Concomitant]
     Dosage: 2 DF, QD
     Route: 048
  2. M.V.I. [Concomitant]
  3. GILENYA [Suspect]
     Dosage: 0.5 MG, DAILY
     Route: 048
     Dates: start: 20110608

REACTIONS (3)
  - DYSARTHRIA [None]
  - BRADYPHRENIA [None]
  - CEREBROVASCULAR ACCIDENT [None]
